FAERS Safety Report 9549451 (Version 1)
Quarter: 2013Q3

REPORT INFORMATION
  Report Type: Spontaneous
  Country: GB (occurrence: GB)
  Receive Date: 20130924
  Receipt Date: 20130924
  Transmission Date: 20140515
  Serious: Yes (Other)
  Sender: FDA-Public Use
  Company Number: GB-TEVA-433189ISR

PATIENT
  Age: 93 Year
  Sex: Female

DRUGS (2)
  1. GALANTAMINE [Suspect]
     Dosage: 2 DIFFERENT BRANDS OF GALANTAMINE XL 24MG. MODIFIED-RELEASE CAPSULE, SOFT.
     Route: 048
     Dates: start: 20130826, end: 20130830
  2. GALANTAMINE [Suspect]
     Dosage: DOSE INCREASE FROM GALANTAMINE XL 16MG TO GALANTAMINE XL 24MG
     Route: 048

REACTIONS (3)
  - Accidental overdose [Unknown]
  - Myoclonus [Recovered/Resolved]
  - Tremor [Unknown]
